FAERS Safety Report 5742908-0 (Version None)
Quarter: 2008Q2

REPORT INFORMATION
  Report Type: 
  Country: None (occurrence: None)
  Receive Date: 20080519
  Receipt Date: 20080506
  Transmission Date: 20081010
  Serious: Yes (Other)
  Sender: FDA-Public Use
  Company Number: MX-ROCHE-555843

PATIENT
  Sex: Female
  Weight: 64 kg

DRUGS (6)
  1. XENICAL [Suspect]
     Indication: WEIGHT CONTROL
     Route: 048
     Dates: start: 20060101
  2. DILAR [Concomitant]
     Route: 048
     Dates: start: 19780101
  3. PENTOXIFYLLINE [Concomitant]
     Dosage: DRUG NAME: PENTOXIFILLINE
  4. OMEGA 369 [Concomitant]
     Route: 048
  5. OMEGA 369 [Concomitant]
     Route: 048
  6. OMEGA 369 [Concomitant]
     Route: 048

REACTIONS (3)
  - COLONIC FISTULA [None]
  - GASTROINTESTINAL PAIN [None]
  - HYSTERECTOMY [None]
